FAERS Safety Report 7727089-6 (Version None)
Quarter: 2011Q3

REPORT INFORMATION
  Report Type: 
  Country: None (occurrence: None)
  Receive Date: 20110902
  Receipt Date: 20110830
  Transmission Date: 20111222
  Serious: Yes (Death, Hospitalization)
  Sender: FDA-Public Use
  Company Number: MX-SANOFI-AVENTIS-2011SA055963

PATIENT
  Sex: Female

DRUGS (2)
  1. PLAVIX [Suspect]
     Route: 048
     Dates: start: 20010101, end: 20100401
  2. PLAVIX [Suspect]
     Indication: THROMBOSIS PROPHYLAXIS
     Route: 048
     Dates: start: 20010101, end: 20100401

REACTIONS (2)
  - CEREBROVASCULAR INSUFFICIENCY [None]
  - CEREBROVASCULAR ACCIDENT [None]
